FAERS Safety Report 10378372 (Version 1)
Quarter: 2014Q3

REPORT INFORMATION
  Report Type: Spontaneous
  Country: GB (occurrence: None)
  Receive Date: 20140807
  Receipt Date: 20140807
  Transmission Date: 20150326
  Serious: Yes (Death, Hospitalization)
  Sender: FDA-Public Use
  Company Number: AUR-APL-2014-08270

PATIENT
  Age: 65 Year
  Sex: Male
  Weight: 70.2 kg

DRUGS (8)
  1. AMITRIPTYLINE HYDROCHLORIDE (AMITRIPTYLINE HYDROCHLORIDE) (TABLET) (AMITRIPTYLINE HYDROCHLORIDE) [Concomitant]
     Active Substance: AMITRIPTYLINE HYDROCHLORIDE
  2. FOLIC ACID (FOLIC ACID) [Concomitant]
     Active Substance: FOLIC ACID
  3. ALFUZOSIN HYDROCHLORIDE (ALFUZOSIN HYDROCHLORIDE) [Concomitant]
  4. CITALOPRAM HYDROBROMIDE (CITALOPRAM HYDROBROMIDE) [Concomitant]
     Active Substance: CITALOPRAM HYDROBROMIDE
  5. WARFARIN SODIUM (WARFARIN SODIUM) [Concomitant]
     Active Substance: WARFARIN SODIUM
  6. PRAVASTATIN [Concomitant]
     Active Substance: PRAVASTATIN\PRAVASTATIN SODIUM
  7. RAMIPRIL (RAMIPRIL) [Concomitant]
     Active Substance: RAMIPRIL
  8. CLARITHROMYCIN. [Suspect]
     Active Substance: CLARITHROMYCIN
     Indication: LOWER RESPIRATORY TRACT INFECTION
     Dosage: 500 MG, TWO TIMES A DAY, ORAL
     Route: 048
     Dates: start: 20130111, end: 20130115

REACTIONS (8)
  - Leukopenia [None]
  - Hepatitis [None]
  - Bone marrow failure [None]
  - Hepatic necrosis [None]
  - Thrombocytopenia [None]
  - Multi-organ failure [None]
  - Gastritis erosive [None]
  - Gastrointestinal haemorrhage [None]

NARRATIVE: CASE EVENT DATE: 20130114
